FAERS Safety Report 11149111 (Version 2)
Quarter: 2015Q2

REPORT INFORMATION
  Report Type: Spontaneous
  Country: UY (occurrence: UY)
  Receive Date: 20150529
  Receipt Date: 20150603
  Transmission Date: 20150821
  Serious: Yes (Other)
  Sender: FDA-Public Use
  Company Number: UY-BAYER-2015-277796

PATIENT
  Age: 32 Year
  Sex: Female

DRUGS (3)
  1. YASMIN [Suspect]
     Active Substance: DROSPIRENONE\ETHINYL ESTRADIOL
     Indication: MENSTRUAL CYCLE MANAGEMENT
     Dosage: UNK
     Dates: start: 2008
  2. YASMIN [Suspect]
     Active Substance: DROSPIRENONE\ETHINYL ESTRADIOL
     Indication: CONTRACEPTION
     Dosage: UNK
  3. YASMIN [Suspect]
     Active Substance: DROSPIRENONE\ETHINYL ESTRADIOL
     Indication: ACNE

REACTIONS (4)
  - Diarrhoea [Not Recovered/Not Resolved]
  - Incorrect drug administration duration [None]
  - Product use issue [None]
  - Gastroenteritis [Not Recovered/Not Resolved]

NARRATIVE: CASE EVENT DATE: 201505
